FAERS Safety Report 10449749 (Version 3)
Quarter: 2014Q4

REPORT INFORMATION
  Report Type: Spontaneous
  Country: US (occurrence: US)
  Receive Date: 20140912
  Receipt Date: 20141211
  Transmission Date: 20150528
  Serious: No
  Sender: FDA-Public Use
  Company Number: US-INCYTE CORPORATION-2014IN001656

PATIENT
  Age: 89 Year
  Sex: Male

DRUGS (2)
  1. JAKAFI [Suspect]
     Active Substance: RUXOLITINIB
     Dosage: 15 MG EVERY OTHER DAY
     Route: 048
  2. JAKAFI [Suspect]
     Active Substance: RUXOLITINIB
     Indication: MYELOFIBROSIS
     Dosage: 15 MG, BID
     Route: 048
     Dates: start: 20140605

REACTIONS (9)
  - Visual impairment [Unknown]
  - Amnesia [Unknown]
  - Skin disorder [Unknown]
  - Body temperature fluctuation [Recovered/Resolved]
  - Abdominal discomfort [Recovered/Resolved]
  - Oral disorder [Unknown]
  - Nausea [Unknown]
  - Drug dose omission [Unknown]
  - Headache [Unknown]

NARRATIVE: CASE EVENT DATE: 20140610
